FAERS Safety Report 17155581 (Version 1)
Quarter: 2019Q4

REPORT INFORMATION
  Report Type: Spontaneous
  Country: US (occurrence: US)
  Receive Date: 20191215
  Receipt Date: 20191215
  Transmission Date: 20200122
  Serious: Yes (Death, Other)
  Sender: FDA-Public Use
  Company Number: US-009507513-1912USA004202

PATIENT
  Age: 73 Year
  Sex: Female

DRUGS (5)
  1. COZAAR [Suspect]
     Active Substance: LOSARTAN POTASSIUM
     Dosage: CAUSE RANK: 2; ROUTE: INGESTION
  2. OXYCODONE [Suspect]
     Active Substance: OXYCODONE
     Dosage: CAUSE RANK: 1; ROUTE: INGESTION
  3. QUETIAPINE FUMARATE. [Suspect]
     Active Substance: QUETIAPINE FUMARATE
     Dosage: CAUSE RANK: 6; ROUTE: INGESTION
  4. ACETAMINOPHEN (+) CAFFEINE (+) MAGNESIUM SALICYLATE [Suspect]
     Active Substance: ACETAMINOPHEN\CAFFEINE\MAGNESIUM SALICYLATE
     Dosage: CAUSE RANK: 3; ROUTE: INGESTION
  5. SERTRALINE HYDROCHLORIDE. [Suspect]
     Active Substance: SERTRALINE HYDROCHLORIDE
     Dosage: CAUSE RANK: 4; ROUTE: INGESTION

REACTIONS (1)
  - Suspected suicide [Fatal]
